FAERS Safety Report 14970554 (Version 4)
Quarter: 2018Q3

REPORT INFORMATION
  Report Type: Spontaneous
  Country: CA (occurrence: CA)
  Receive Date: 20180604
  Receipt Date: 20180803
  Transmission Date: 20181010
  Serious: Yes (Other)
  Sender: FDA-Public Use
  Company Number: CA-GILEAD-2018-0341980

PATIENT
  Age: 47 Year
  Sex: Female

DRUGS (3)
  1. MIDODRINE [Concomitant]
     Active Substance: MIDODRINE
  2. UPTRAVI [Suspect]
     Active Substance: SELEXIPAG
     Indication: PRODUCT USED FOR UNKNOWN INDICATION
     Dosage: 200 UG, UNK
     Route: 065
  3. AMBRISENTAN [Suspect]
     Active Substance: AMBRISENTAN
     Indication: PULMONARY ARTERIAL HYPERTENSION
     Dosage: UNK
     Route: 065
     Dates: start: 20180516

REACTIONS (4)
  - Hypotension [Unknown]
  - Blood pressure abnormal [Unknown]
  - Dialysis [Unknown]
  - Drug dose omission [Unknown]
